FAERS Safety Report 6516055-4 (Version None)
Quarter: 2009Q4

REPORT INFORMATION
  Report Type: 
  Country: None (occurrence: None)
  Receive Date: 20091216
  Receipt Date: 20090910
  Transmission Date: 20100525
  Serious: Yes (Other)
  Sender: FDA-Public Use
  Company Number: DSA_41632_2009

PATIENT
  Sex: Female

DRUGS (2)
  1. XENAZINE [Suspect]
     Indication: DYSKINESIA
     Dosage: 12.5 MG TID, 12.5 MG BID, 12.5 MG QD
     Dates: end: 20090908
  2. XENAZINE [Suspect]
     Indication: DYSKINESIA
     Dosage: 12.5 MG TID, 12.5 MG BID, 12.5 MG QD
     Dates: start: 20090721

REACTIONS (3)
  - CRYING [None]
  - DEPRESSION [None]
  - SUICIDAL IDEATION [None]
